FAERS Safety Report 21839053 (Version 2)
Quarter: 2023Q1

REPORT INFORMATION
  Report Type: Spontaneous
  Country: US (occurrence: US)
  Receive Date: 20230109
  Receipt Date: 20230127
  Transmission Date: 20230418
  Serious: Yes (Other)
  Sender: FDA-Public Use
  Company Number: US-GLASSHOUSE PHARMACEUTICALS LIMITED CA-2022GLH00011

PATIENT
  Age: 36 Year
  Sex: Male
  Weight: 99.773 kg

DRUGS (7)
  1. OXCARBAZEPINE [Suspect]
     Active Substance: OXCARBAZEPINE
     Indication: Trigeminal neuralgia
     Dosage: 150 MG, 2X/DAY, EVERY 12 HOURS
     Route: 048
     Dates: start: 20190905, end: 20190906
  2. OXCARBAZEPINE [Suspect]
     Active Substance: OXCARBAZEPINE
     Indication: Neuritis
  3. SERTRALINE [Concomitant]
     Active Substance: SERTRALINE HYDROCHLORIDE
     Dosage: 100 MG, 1X/DAY
  4. GABAPENTIN [Concomitant]
     Active Substance: GABAPENTIN
     Dosage: 600 MG, 3X/DAY, EVERY 8 HOURS
     Route: 048
     Dates: start: 201908
  5. LIDOCAINE VISCOUS [Concomitant]
     Active Substance: LIDOCAINE HYDROCHLORIDE
     Dosage: USE FOR ORAL LESIONS AS NEEDED EVERY 4-6 HOURS
  6. BACLOFEN [Concomitant]
     Active Substance: BACLOFEN
     Dosage: 10 MG, 3X/DAY, EVERY 8 HOURS
     Route: 048
     Dates: start: 201908
  7. NORTRIPTYLINE [Concomitant]
     Active Substance: NORTRIPTYLINE
     Dosage: 25 MG, 2X/DAY, EVERY 12 HOURS
     Route: 048
     Dates: start: 201908

REACTIONS (3)
  - Angioedema [Recovered/Resolved]
  - Necrosis [Recovered/Resolved]
  - Scar [Not Recovered/Not Resolved]

NARRATIVE: CASE EVENT DATE: 20190906
